FAERS Safety Report 14781090 (Version 1)
Quarter: 2018Q2

REPORT INFORMATION
  Report Type: Spontaneous
  Country: BE (occurrence: BE)
  Receive Date: 20180419
  Receipt Date: 20180419
  Transmission Date: 20180711
  Serious: Yes (Death)
  Sender: FDA-Public Use
  Company Number: BE-EXELIXIS-CABO-18013539

PATIENT
  Age: 66 Year
  Sex: Female

DRUGS (2)
  1. VOTRIENT [Suspect]
     Active Substance: PAZOPANIB HYDROCHLORIDE
  2. CABOMETYX [Suspect]
     Active Substance: CABOZANTINIB S-MALATE
     Indication: RENAL CELL CARCINOMA
     Dosage: 60 MG, QD
     Route: 048
     Dates: start: 20180215

REACTIONS (3)
  - Mesenteric artery thrombosis [Fatal]
  - Intestinal ischaemia [Fatal]
  - Small intestinal perforation [Fatal]

NARRATIVE: CASE EVENT DATE: 20180307
